FAERS Safety Report 10431232 (Version 1)
Quarter: 2014Q3

REPORT INFORMATION
  Report Type: Spontaneous
  Country: US (occurrence: None)
  Receive Date: 20140815
  Receipt Date: 20140815
  Transmission Date: 20150326
  Serious: No
  Sender: FDA-Public Use
  Company Number: A-NJ2014-100199

PATIENT
  Age: 63 Year
  Sex: Female

DRUGS (9)
  1. CARDIZEM (DILTIAZEM HYDROCHLORIDE) [Concomitant]
  2. LASIX [Concomitant]
     Active Substance: FUROSEMIDE
  3. REVATIO (SILDENAFIL CITRATE) [Concomitant]
  4. ARIMIDEX [Concomitant]
     Active Substance: ANASTROZOLE
  5. COUMADIN [Concomitant]
     Active Substance: WARFARIN SODIUM
  6. DUONEB (IPRATROPIUM BROMIDE, SALBUTAMOL SULFATE) [Concomitant]
  7. PULMICORT TURBUHALER [Concomitant]
     Active Substance: BUDESONIDE
  8. LANTUS [Concomitant]
     Active Substance: INSULIN GLARGINE
  9. OPSUMIT [Suspect]
     Active Substance: MACITENTAN
     Indication: PULMONARY ARTERIAL HYPERTENSION
     Route: 048
     Dates: start: 20140429

REACTIONS (2)
  - Feeling cold [None]
  - Cold sweat [None]

NARRATIVE: CASE EVENT DATE: 20140523
